FAERS Safety Report 4283200-3 (Version None)
Quarter: 2004Q1

REPORT INFORMATION
  Report Type: 
  Country: None (occurrence: None)
  Receive Date: 20040129
  Receipt Date: 20040121
  Transmission Date: 20041129
  Serious: Yes (Other)
  Sender: FDA-Public Use
  Company Number: 2004-DE-00344GD

PATIENT
  Age: 40 Year
  Sex: Male

DRUGS (3)
  1. AZATHIOPRINE [Suspect]
     Indication: CROHN'S DISEASE
  2. METHOTREXATE [Suspect]
     Indication: CROHN'S DISEASE
  3. INFLIXIMAB (INFLIXIMAB) [Suspect]
     Indication: CROHN'S DISEASE
     Dosage: 5 MG/KG

REACTIONS (7)
  - ACUTE LYMPHOCYTIC LEUKAEMIA [None]
  - ANOREXIA [None]
  - ASTHENIA [None]
  - B-CELL TYPE ACUTE LEUKAEMIA [None]
  - DRUG INEFFECTIVE [None]
  - GASTROINTESTINAL DISORDER [None]
  - MALAISE [None]
